FAERS Safety Report 6500003-7 (Version None)
Quarter: 2009Q4

REPORT INFORMATION
  Report Type: 
  Country: None (occurrence: None)
  Receive Date: 20091216
  Receipt Date: 20091118
  Transmission Date: 20100525
  Serious: Yes (Other)
  Sender: FDA-Public Use
  Company Number: A0817754A

PATIENT
  Sex: Female

DRUGS (1)
  1. LAMICTAL XR [Suspect]
     Indication: EPILEPSY
     Route: 048
     Dates: start: 20091101, end: 20091101

REACTIONS (2)
  - NAUSEA [None]
  - VOMITING [None]
